FAERS Safety Report 5357820-9 (Version None)
Quarter: 2007Q2

REPORT INFORMATION
  Report Type: 
  Country: None (occurrence: None)
  Receive Date: 20070530
  Receipt Date: 20061005
  Transmission Date: 20071010
  Serious: Yes (Hospitalization)
  Sender: FDA-Public Use
  Company Number: US200609000547

PATIENT
  Age: 62 Year
  Sex: Female
  Weight: 127 kg

DRUGS (5)
  1. ZYPREXA [Suspect]
     Dosage: 7.5 MG
     Dates: start: 19980101
  2. SEROQUEL [Concomitant]
  3. RISPERIDONE [Concomitant]
  4. PAXIL [Concomitant]
  5. ZOLOFT [Concomitant]

REACTIONS (5)
  - CEREBROVASCULAR ACCIDENT [None]
  - DIABETES MELLITUS [None]
  - HYPERTENSION [None]
  - LACTIC ACIDOSIS [None]
  - METABOLIC DISORDER [None]
